FAERS Safety Report 10187825 (Version 1)
Quarter: 2014Q2

REPORT INFORMATION
  Report Type: Spontaneous
  Country: US (occurrence: US)
  Receive Date: 20140522
  Receipt Date: 20140522
  Transmission Date: 20141212
  Serious: No
  Sender: FDA-Public Use
  Company Number: US-SA-2013SA107189

PATIENT
  Age: 83 Year
  Sex: Female
  Weight: 65.77 kg

DRUGS (13)
  1. LANTUS SOLOSTAR [Suspect]
     Indication: TYPE 2 DIABETES MELLITUS
     Dosage: TAKEN FROM-7 YEARS OR SO DOSE:30 UNIT(S)
     Route: 051
  2. LANTUS SOLOSTAR [Suspect]
     Indication: TYPE 2 DIABETES MELLITUS
     Dosage: TAKEN FROM-7 YEARS OR SO DOSE:30 UNIT(S)
     Route: 051
  3. LANTUS SOLOSTAR [Suspect]
     Indication: TYPE 2 DIABETES MELLITUS
     Dosage: TAKEN FROM-7 YEARS OR SO DOSE:30 UNIT(S)
     Route: 051
  4. LANTUS SOLOSTAR [Suspect]
     Indication: TYPE 2 DIABETES MELLITUS
     Dosage: TAKEN FROM-7 YEARS OR SO DOSE:30 UNIT(S)
     Route: 051
  5. SOLOSTAR [Concomitant]
     Indication: TYPE 2 DIABETES MELLITUS
     Dosage: TAKEN FROM-7 YEARS OR SO
  6. SOLOSTAR [Concomitant]
     Indication: TYPE 2 DIABETES MELLITUS
     Dosage: TAKEN FROM-7 YEARS OR SO
  7. SOLOSTAR [Concomitant]
     Indication: TYPE 2 DIABETES MELLITUS
     Dosage: TAKEN FROM-7 YEARS OR SO
  8. SOLOSTAR [Concomitant]
     Indication: TYPE 2 DIABETES MELLITUS
     Dosage: TAKEN FROM-7 YEARS OR SO
  9. ALBUTEROL SULFATE [Concomitant]
     Route: 065
  10. ASPIRIN [Concomitant]
     Route: 065
  11. CALCIUM 500 D [Concomitant]
     Route: 065
  12. DIOVANE [Concomitant]
     Route: 065
  13. NOVOLOG [Concomitant]
     Route: 065
     Dates: start: 20091015

REACTIONS (2)
  - Adverse drug reaction [Not Recovered/Not Resolved]
  - Expired product administered [Unknown]
